FAERS Safety Report 21728658 (Version 1)
Quarter: 2022Q4

REPORT INFORMATION
  Report Type: Spontaneous
  Country: US (occurrence: US)
  Receive Date: 20221214
  Receipt Date: 20221214
  Transmission Date: 20230113
  Serious: No
  Sender: FDA-Public Use
  Company Number: US-BAYER-2022P027796

PATIENT
  Sex: Female

DRUGS (5)
  1. BETASERON [Suspect]
     Active Substance: INTERFERON BETA-1B
     Indication: Product used for unknown indication
  2. CRANBERRY FRUIT [Concomitant]
  3. MELATONIN GUMMIES [Concomitant]
  4. TIZANIDINE [Concomitant]
     Active Substance: TIZANIDINE
  5. MODAFINIL [Concomitant]
     Active Substance: MODAFINIL

REACTIONS (2)
  - Adverse drug reaction [None]
  - Influenza [None]
